FAERS Safety Report 6999237-7 (Version None)
Quarter: 2010Q3

REPORT INFORMATION
  Report Type: 
  Country: None (occurrence: None)
  Receive Date: 20100920
  Receipt Date: 20100309
  Transmission Date: 20110219
  Serious: No
  Sender: FDA-Public Use
  Company Number: US-ASTRAZENECA-2010SE10218

PATIENT
  Age: 56 Year
  Sex: Female

DRUGS (7)
  1. SEROQUEL [Suspect]
     Indication: DEPRESSION
     Dosage: 25 MG, 2 TABLETS AT BEDTIME
     Route: 048
  2. SEROQUEL [Suspect]
     Route: 048
  3. SEROQUEL [Suspect]
     Route: 048
  4. NEXIUM [Concomitant]
     Indication: GASTROOESOPHAGEAL REFLUX DISEASE
     Route: 048
  5. DURAGESIC-100 [Concomitant]
     Indication: BACK PAIN
     Route: 065
  6. CHOLESTEROL MEDICATION [Concomitant]
     Indication: BLOOD CHOLESTEROL INCREASED
     Route: 065
  7. UNSPECIFIED ANTIDEPRESSANT [Concomitant]
     Route: 065

REACTIONS (4)
  - CRYING [None]
  - DEPRESSION [None]
  - DRUG INEFFECTIVE [None]
  - TEARFULNESS [None]
